FAERS Safety Report 8501429-2 (Version None)
Quarter: 2012Q3

REPORT INFORMATION
  Report Type: 
  Country: None (occurrence: None)
  Receive Date: 20120710
  Receipt Date: 20120704
  Transmission Date: 20120928
  Serious: Yes (Other)
  Sender: FDA-Public Use
  Company Number: JP-B.I. PHARMACEUTICALS,INC./RIDGEFIELD-2012-BP-14973NB

PATIENT
  Age: 71 Year
  Sex: Male
  Weight: 63.5 kg

DRUGS (9)
  1. AMARYL [Suspect]
     Route: 048
  2. BISOPROLOL FUMARATE [Suspect]
     Route: 048
     Dates: start: 20120601
  3. DIFLUNISAL [Suspect]
     Route: 048
  4. PRADAXA [Suspect]
     Indication: ATRIAL FIBRILLATION
     Dosage: 220 MG
     Route: 048
     Dates: start: 20110711, end: 20120701
  5. VITAMIN B12 [Suspect]
     Route: 048
  6. MENEST [Suspect]
     Dosage: 200 MG
     Route: 048
  7. FAMOTIDINE [Suspect]
     Dosage: 20 MG
     Route: 048
  8. LIPITOR [Suspect]
     Dosage: 10 MG
     Route: 048
  9. JUVELA [Suspect]
     Route: 048

REACTIONS (1)
  - INTERSTITIAL LUNG DISEASE [None]
